FAERS Safety Report 8918048 (Version 3)
Quarter: 2014Q2

REPORT INFORMATION
  Report Type: Spontaneous
  Country: US (occurrence: US)
  Receive Date: 20121120
  Receipt Date: 20140519
  Transmission Date: 20141212
  Serious: No
  Sender: FDA-Public Use
  Company Number: US-ASTRAZENECA-2012SE11890

PATIENT
  Age: 56 Year
  Sex: Female
  Weight: 68 kg

DRUGS (17)
  1. NEXIUM [Suspect]
     Indication: GASTROOESOPHAGEAL REFLUX DISEASE
     Route: 048
     Dates: start: 2003, end: 2008
  2. NEXIUM [Suspect]
     Indication: GASTROOESOPHAGEAL REFLUX DISEASE
     Route: 048
     Dates: start: 2009, end: 20140505
  3. NEXIUM [Suspect]
     Indication: GASTROOESOPHAGEAL REFLUX DISEASE
     Dosage: DOSE WAS INCREASED ABOUT A MONTHE AGO DUE TO RETURN OF HEARTBURN
     Route: 048
  4. LISINOPRIL [Suspect]
     Route: 048
     Dates: start: 20120424
  5. PRILOSEC OTC [Suspect]
     Indication: GASTROOESOPHAGEAL REFLUX DISEASE
     Dosage: DAILY
     Route: 048
     Dates: start: 2008, end: 2009
  6. CRESTOR [Suspect]
     Indication: BLOOD PRESSURE ABNORMAL
     Dosage: HALF TABLET, EVERY DAY
     Route: 048
  7. CRESTOR [Suspect]
     Indication: BLOOD PRESSURE ABNORMAL
     Route: 048
  8. CRESTOR [Suspect]
     Indication: BLOOD PRESSURE ABNORMAL
     Route: 048
  9. CRESTOR [Suspect]
     Indication: BLOOD PRESSURE ABNORMAL
     Route: 048
     Dates: start: 2013
  10. ADVAIR DISKUS [Concomitant]
  11. DIABETA [Concomitant]
  12. FREESTYLE LANCET [Concomitant]
  13. GLUCOPHAGE [Concomitant]
  14. METOPROLOL TARTRATE [Concomitant]
  15. PAXIL [Concomitant]
  16. MIRAPEX [Concomitant]
  17. COUMADIN [Concomitant]

REACTIONS (6)
  - Dyspepsia [Unknown]
  - Liver function test abnormal [Unknown]
  - Vomiting [Unknown]
  - Off label use [Unknown]
  - Drug dose omission [Unknown]
  - Drug ineffective [Unknown]
